FAERS Safety Report 8442974-8 (Version None)
Quarter: 2012Q2

REPORT INFORMATION
  Report Type: 
  Country: None (occurrence: None)
  Receive Date: 20120615
  Receipt Date: 20120612
  Transmission Date: 20120825
  Serious: Yes (Death, Other)
  Sender: FDA-Public Use
  Company Number: CA-ELI_LILLY_AND_COMPANY-CA201205006156

PATIENT
  Sex: Female
  Weight: 61 kg

DRUGS (5)
  1. VENTOLIN [Concomitant]
  2. FORTEO [Suspect]
     Indication: OSTEOPOROSIS
     Dosage: UNK
     Dates: start: 20080130, end: 20090815
  3. LORAZEPAM [Concomitant]
  4. SYMBICORT [Concomitant]
     Dosage: UNK, QD
  5. RISEDRONAT [Concomitant]

REACTIONS (7)
  - PULMONARY HYPERTENSION [None]
  - LUNG SQUAMOUS CELL CARCINOMA STAGE UNSPECIFIED [None]
  - EMPHYSEMA [None]
  - VENTRICULAR HYPERTROPHY [None]
  - PLEURAL EFFUSION [None]
  - BRONCHOPNEUMONIA [None]
  - INTERSTITIAL LUNG DISEASE [None]
